FAERS Safety Report 18538735 (Version 7)
Quarter: 2021Q2

REPORT INFORMATION
  Report Type: Report from Study
  Country: CA (occurrence: CA)
  Receive Date: 20201123
  Receipt Date: 20210601
  Transmission Date: 20210717
  Serious: Yes (Other)
  Sender: FDA-Public Use
  Company Number: CA-NALPROPION PHARMACEUTICALS INC.-2020-009494

PATIENT

DRUGS (12)
  1. IRON [Concomitant]
     Active Substance: IRON
     Indication: PRODUCT USED FOR UNKNOWN INDICATION
     Dosage: SUPPLEMENTS
  2. CONTRAVE [Suspect]
     Active Substance: BUPROPION HYDROCHLORIDE\NALTREXONE HYDROCHLORIDE
     Dosage: 8/90 MG, 1 TABLET IN THE MORNING, 1 AT LUNCH, AND 2 AT SUPPER
     Route: 048
     Dates: start: 202008, end: 2020
  3. CONTRAVE [Suspect]
     Active Substance: BUPROPION HYDROCHLORIDE\NALTREXONE HYDROCHLORIDE
     Dosage: 2 IN THE MORNING AND TWO AT SUPPER
     Route: 048
     Dates: start: 2020
  4. CONTRAVE [Suspect]
     Active Substance: BUPROPION HYDROCHLORIDE\NALTREXONE HYDROCHLORIDE
     Dosage: TWO TABLETS IN MORNING AND TWO TABLETS IN EVENING, 8/90 MG
     Route: 048
     Dates: start: 20191216
  5. SINGULAIR [Concomitant]
     Active Substance: MONTELUKAST SODIUM
     Indication: RHINITIS
     Dosage: 10 MG, 1 IN 1 D
     Route: 048
  6. BLEXTEN [Concomitant]
     Active Substance: BILASTINE
     Indication: HYPERSENSITIVITY
     Dosage: 10 MG, 1 IN 1 D
     Route: 048
  7. FERROUS SULFATE. [Concomitant]
     Active Substance: FERROUS SULFATE
     Indication: PROPHYLAXIS
     Dosage: 300 MG, 1 IN 56 HR
     Route: 048
  8. INULIN [Concomitant]
     Active Substance: INULIN
     Indication: CONSTIPATION
     Dosage: 1 IN 1 D
     Route: 048
  9. CONTRAVE [Suspect]
     Active Substance: BUPROPION HYDROCHLORIDE\NALTREXONE HYDROCHLORIDE
     Indication: WEIGHT CONTROL
     Dosage: ONE TABLET IN MORNING, 8/90 MG
     Route: 048
     Dates: start: 20191125, end: 20191201
  10. CONTRAVE [Suspect]
     Active Substance: BUPROPION HYDROCHLORIDE\NALTREXONE HYDROCHLORIDE
     Dosage: ONE TABLET IN MORNING AND ONE TABLET IN EVENING, 8/90 MG
     Route: 048
     Dates: start: 20191202, end: 20191208
  11. CONTRAVE [Suspect]
     Active Substance: BUPROPION HYDROCHLORIDE\NALTREXONE HYDROCHLORIDE
     Dosage: TWO TABLETS IN MORNING AND ONE TABLET IN EVENING, 8/90 MG
     Route: 048
     Dates: start: 20191209, end: 20191215
  12. SINGULAIR [Concomitant]
     Active Substance: MONTELUKAST SODIUM
     Indication: HYPERSENSITIVITY

REACTIONS (18)
  - Drug withdrawal syndrome [Unknown]
  - Mental disorder [Not Recovered/Not Resolved]
  - Feeling abnormal [Unknown]
  - Middle insomnia [Unknown]
  - Inappropriate schedule of product administration [Unknown]
  - Hunger [Not Recovered/Not Resolved]
  - Constipation [Unknown]
  - Balance disorder [Unknown]
  - Menstruation irregular [Not Recovered/Not Resolved]
  - Product dose omission in error [Unknown]
  - Poor quality sleep [Recovered/Resolved]
  - Eating disorder [Unknown]
  - Blood urine present [Not Recovered/Not Resolved]
  - Road traffic accident [Unknown]
  - Polyuria [Not Recovered/Not Resolved]
  - Stress [Not Recovered/Not Resolved]
  - Fatigue [Unknown]
  - Product prescribing error [Unknown]

NARRATIVE: CASE EVENT DATE: 201912
